FAERS Safety Report 24313392 (Version 3)
Quarter: 2024Q4

REPORT INFORMATION
  Report Type: Report from Study
  Country: US (occurrence: US)
  Receive Date: 20240912
  Receipt Date: 20241107
  Transmission Date: 20250115
  Serious: Yes (Hospitalization)
  Sender: TAIHO ONCOLOGY INC
  Company Number: US-TAIHOP-2024-007533

PATIENT
  Age: 56 Year
  Sex: Female
  Weight: 58.33 kg

DRUGS (2)
  1. LONSURF [Suspect]
     Active Substance: TIPIRACIL HYDROCHLORIDE\TRIFLURIDINE
     Indication: Rectosigmoid cancer
     Dosage: CYCLE 1?FORM STRENGTH UNKNOWN
     Route: 048
     Dates: start: 20240712
  2. AVASTIN [Concomitant]
     Active Substance: BEVACIZUMAB
     Indication: Product used for unknown indication

REACTIONS (6)
  - Pain [Unknown]
  - Malaise [Unknown]
  - Illness [Unknown]
  - Anxiety [Unknown]
  - Stomatitis [Unknown]
  - Vomiting [Unknown]
